FAERS Safety Report 14513492 (Version 1)
Quarter: 2018Q1

REPORT INFORMATION
  Report Type: Spontaneous
  Country: US (occurrence: US)
  Receive Date: 20180208
  Receipt Date: 20180208
  Transmission Date: 20180509
  Serious: No
  Sender: FDA-Public Use
  Company Number: None

PATIENT
  Age: 80 Year
  Sex: Male
  Weight: 92.7 kg

DRUGS (21)
  1. HYDRAKAZUBE [Concomitant]
  2. METOPROLOL TARTRATE. [Concomitant]
     Active Substance: METOPROLOL TARTRATE
  3. LEVEMIR [Concomitant]
     Active Substance: INSULIN DETEMIR
  4. VITAMIN D3 [Concomitant]
     Active Substance: CHOLECALCIFEROL
  5. VITAMIN B12 [Concomitant]
     Active Substance: CYANOCOBALAMIN
  6. CENTRUM SILVER [Concomitant]
     Active Substance: MINERALS\VITAMINS
  7. ESBRIET [Suspect]
     Active Substance: PIRFENIDONE
     Indication: PULMONARY FIBROSIS
     Dosage: ?          QUANTITY:3 TABLET(S);?
     Route: 048
     Dates: start: 20171030
  8. RANITIDINE. [Concomitant]
     Active Substance: RANITIDINE
  9. ACETANINOPHEN PM [Concomitant]
  10. POTASSIUM CHLORIDE. [Concomitant]
     Active Substance: POTASSIUM CHLORIDE
  11. TAMSULOSIN [Concomitant]
     Active Substance: TAMSULOSIN
  12. BABY ASPIRIN [Concomitant]
     Active Substance: ASPIRIN
  13. LEVOTHYROXINE. [Concomitant]
     Active Substance: LEVOTHYROXINE
  14. GAGAPENTIN [Concomitant]
  15. LOSARTAN. [Concomitant]
     Active Substance: LOSARTAN
  16. ATORVASTIN [Concomitant]
     Active Substance: ATORVASTATIN
  17. NOVOLOG [Concomitant]
     Active Substance: INSULIN ASPART
  18. FISH OIL [Concomitant]
     Active Substance: FISH OIL
  19. LACTOBACILLUS PHAMNOSUS [Concomitant]
  20. FUROSEMIDE. [Concomitant]
     Active Substance: FUROSEMIDE
  21. FIBER THERAPY [Concomitant]
     Active Substance: METHYLCELLULOSE (4000 MPA.S)

REACTIONS (3)
  - Erectile dysfunction [None]
  - Decreased appetite [None]
  - Ageusia [None]

NARRATIVE: CASE EVENT DATE: 20180115
